FAERS Safety Report 24226928 (Version 1)
Quarter: 2024Q3

REPORT INFORMATION
  Report Type: Spontaneous
  Country: US (occurrence: None)
  Receive Date: 20240819
  Receipt Date: 20240819
  Transmission Date: 20241017
  Serious: Yes (Other)
  Sender: Public
  Company Number: None

PATIENT
  Age: 63 Year
  Sex: Female
  Weight: 80.55 kg

DRUGS (10)
  1. PLAVIX [Suspect]
     Active Substance: CLOPIDOGREL BISULFATE
     Indication: Product used for unknown indication
     Dosage: OTHER QUANTITY : 1 TABLET(S);?FREQUENCY : DAILY;?
     Route: 048
     Dates: start: 20240324
  2. EZETIMIBE [Concomitant]
     Active Substance: EZETIMIBE
  3. AMLOODIPINE [Concomitant]
  4. NITROGLYCERIN [Concomitant]
     Active Substance: NITROGLYCERIN
  5. ASPIRIN [Concomitant]
     Active Substance: ASPIRIN
  6. EVOLOCUMAB [Concomitant]
     Active Substance: EVOLOCUMAB
  7. TOPROL XL [Concomitant]
     Active Substance: METOPROLOL SUCCINATE
  8. VITAMINS [Concomitant]
     Active Substance: VITAMINS
  9. FISH OIL [Concomitant]
     Active Substance: FISH OIL
  10. COENZYME Q10 [Concomitant]
     Active Substance: DIETARY SUPPLEMENT\UBIDECARENONE

REACTIONS (6)
  - Rash [None]
  - Rash [None]
  - Mouth haemorrhage [None]
  - Sputum discoloured [None]
  - Skin ulcer [None]
  - Post procedural complication [None]

NARRATIVE: CASE EVENT DATE: 20240802
